FAERS Safety Report 4315421-5 (Version None)
Quarter: 2004Q1

REPORT INFORMATION
  Report Type: 
  Country: None (occurrence: None)
  Receive Date: 20040310
  Receipt Date: 20040209
  Transmission Date: 20041129
  Serious: Yes (Hospitalization)
  Sender: FDA-Public Use
  Company Number: 7477

PATIENT
  Age: 65 Year
  Sex: Female

DRUGS (7)
  1. MORPHINE [Suspect]
     Indication: ANALGESIC EFFECT
     Dosage: 30 MG
     Route: 048
     Dates: start: 20031221, end: 20031221
  2. ONDANSETRON HCL [Suspect]
     Indication: PROPHYLAXIS OF NAUSEA AND VOMITING
     Dosage: 4 MG FREQ UNK
     Route: 042
     Dates: start: 20031220, end: 20031221
  3. ACETAMINOPHEN [Concomitant]
  4. FERROUS SULFATE TAB [Concomitant]
  5. PREDNISOLONE [Concomitant]
  6. METHOTREXATE [Concomitant]
  7. SULPHASALAZINE [Concomitant]

REACTIONS (11)
  - BRUXISM [None]
  - CONVULSION [None]
  - HYPERTONIA [None]
  - HYPOTENSION [None]
  - LOSS OF CONSCIOUSNESS [None]
  - NAUSEA [None]
  - RASH [None]
  - RESPIRATORY ARREST [None]
  - RESPIRATORY DEPRESSION [None]
  - TACHYCARDIA [None]
  - VOMITING [None]
